FAERS Safety Report 20618118 (Version 1)
Quarter: 2022Q1

REPORT INFORMATION
  Report Type: Spontaneous
  Country: US (occurrence: US)
  Receive Date: 20220321
  Receipt Date: 20220321
  Transmission Date: 20220423
  Serious: Yes (Other)
  Sender: FDA-Public Use
  Company Number: US-AMERICAN REGENT INC-2022000785

PATIENT
  Age: 37 Year
  Sex: Female
  Weight: 162.6 kg

DRUGS (46)
  1. VENOFER [Suspect]
     Active Substance: IRON SUCROSE
     Indication: Iron deficiency anaemia
     Dosage: 200 MG IN NACL 0.9 % 100 ML
     Route: 042
     Dates: start: 20190625, end: 20190625
  2. VENOFER [Suspect]
     Active Substance: IRON SUCROSE
     Dosage: 200 MG IN NACL 0.9 % 100 ML
     Route: 042
     Dates: start: 20190702, end: 20190702
  3. VENOFER [Suspect]
     Active Substance: IRON SUCROSE
     Dosage: 200 MG IN NACL 0.9 % 100 ML
     Route: 042
     Dates: start: 20190711, end: 20190711
  4. VENOFER [Suspect]
     Active Substance: IRON SUCROSE
     Dosage: 200 MG IN NACL 0.9 % 100 ML
     Route: 042
     Dates: start: 20190717, end: 20190717
  5. VENOFER [Suspect]
     Active Substance: IRON SUCROSE
     Dosage: 200 MG IN NACL 0.9 % 100 ML
     Route: 042
     Dates: start: 20190719, end: 20190719
  6. VENOFER [Suspect]
     Active Substance: IRON SUCROSE
     Dosage: 200 MG IN NACL 0.9 % 100 ML
     Route: 042
     Dates: start: 20190723, end: 20190723
  7. DIPHENHYDRAMINE [Concomitant]
     Active Substance: DIPHENHYDRAMINE
     Indication: Premedication
     Dosage: 50 MILLIGRAM, SINGLE
     Route: 042
     Dates: start: 20190625, end: 20190625
  8. DIPHENHYDRAMINE [Concomitant]
     Active Substance: DIPHENHYDRAMINE
     Dosage: 25 MILLIGRAM, SINGLE
     Route: 042
     Dates: start: 20190702, end: 20190702
  9. DIPHENHYDRAMINE [Concomitant]
     Active Substance: DIPHENHYDRAMINE
     Dosage: 50 MILLIGRAM, SINGLE
     Route: 042
     Dates: start: 20190711, end: 20190711
  10. DIPHENHYDRAMINE [Concomitant]
     Active Substance: DIPHENHYDRAMINE
     Dosage: 50 MILLIGRAM, SINGLE
     Route: 042
     Dates: start: 20190717, end: 20190717
  11. DIPHENHYDRAMINE [Concomitant]
     Active Substance: DIPHENHYDRAMINE
     Dosage: 50 MILLIGRAM, SINGLE
     Route: 042
     Dates: start: 20190719, end: 20190719
  12. DIPHENHYDRAMINE [Concomitant]
     Active Substance: DIPHENHYDRAMINE
     Dosage: 50 MILLIGRAM, SINGLE
     Route: 042
     Dates: start: 20190723, end: 20190723
  13. METHYLPREDNISOLONE SODIUM SUCCINATE [Concomitant]
     Active Substance: METHYLPREDNISOLONE SODIUM SUCCINATE
     Indication: Premedication
     Dosage: 40 MILLIGRAM, QD
     Route: 042
     Dates: start: 20190702, end: 20190702
  14. METHYLPREDNISOLONE SODIUM SUCCINATE [Concomitant]
     Active Substance: METHYLPREDNISOLONE SODIUM SUCCINATE
     Dosage: 40 MILLIGRAM, QD
     Route: 042
     Dates: start: 20190711, end: 20190711
  15. METHYLPREDNISOLONE SODIUM SUCCINATE [Concomitant]
     Active Substance: METHYLPREDNISOLONE SODIUM SUCCINATE
     Dosage: 40 MILLIGRAM, QD
     Route: 042
     Dates: start: 20190717, end: 20190717
  16. METHYLPREDNISOLONE SODIUM SUCCINATE [Concomitant]
     Active Substance: METHYLPREDNISOLONE SODIUM SUCCINATE
     Dosage: 40 MILLIGRAM, QD
     Route: 042
     Dates: start: 20190719, end: 20190719
  17. METHYLPREDNISOLONE SODIUM SUCCINATE [Concomitant]
     Active Substance: METHYLPREDNISOLONE SODIUM SUCCINATE
     Dosage: 40 MILLIGRAM, QD
     Route: 042
     Dates: start: 20190723, end: 20190723
  18. HEPARIN [Concomitant]
     Active Substance: HEPARIN SODIUM
     Indication: Catheter management
     Dosage: 500 UNITS
     Route: 042
     Dates: start: 20190702, end: 20190702
  19. HEPARIN [Concomitant]
     Active Substance: HEPARIN SODIUM
     Dosage: 500 UNITS
     Route: 042
     Dates: start: 20190711, end: 20190711
  20. HEPARIN [Concomitant]
     Active Substance: HEPARIN SODIUM
     Dosage: 500 UNITS
     Route: 042
     Dates: start: 20190717, end: 20190717
  21. HEPARIN [Concomitant]
     Active Substance: HEPARIN SODIUM
     Dosage: 500 UNITS
     Route: 042
     Dates: start: 20190719, end: 20190719
  22. HEPARIN [Concomitant]
     Active Substance: HEPARIN SODIUM
     Dosage: 500 UNITS
     Route: 042
     Dates: start: 20190723, end: 20190723
  23. PROMETHAZINE [Concomitant]
     Active Substance: PROMETHAZINE HYDROCHLORIDE
     Indication: Nausea
     Dosage: 25 MILLIGRAM, TID, PRN
     Route: 048
  24. PROMETHAZINE [Concomitant]
     Active Substance: PROMETHAZINE HYDROCHLORIDE
     Indication: Premedication
     Dosage: 25 MILLIGRAM, SINGLE
     Route: 048
     Dates: start: 20190702, end: 20190702
  25. PROMETHAZINE [Concomitant]
     Active Substance: PROMETHAZINE HYDROCHLORIDE
     Dosage: 25 MILLIGRAM, SINGLE
     Route: 048
     Dates: start: 20190711, end: 20190711
  26. PROMETHAZINE [Concomitant]
     Active Substance: PROMETHAZINE HYDROCHLORIDE
     Dosage: 25 MILLIGRAM, SINGLE
     Route: 048
     Dates: start: 20190717, end: 20190717
  27. PROMETHAZINE [Concomitant]
     Active Substance: PROMETHAZINE HYDROCHLORIDE
     Dosage: 25 MILLIGRAM, SINGLE
     Route: 048
     Dates: start: 20190719, end: 20190719
  28. PROMETHAZINE [Concomitant]
     Active Substance: PROMETHAZINE HYDROCHLORIDE
     Dosage: 25 MILLIGRAM, SINGLE
     Route: 048
     Dates: start: 20190723, end: 20190723
  29. DOCUSATE SODIUM [Concomitant]
     Active Substance: DOCUSATE SODIUM
     Indication: Product used for unknown indication
     Dosage: 100 MILLIGRAM, BID
     Route: 048
  30. METOCLOPRAMIDE [Concomitant]
     Active Substance: METOCLOPRAMIDE
     Indication: Product used for unknown indication
     Dosage: 10 MILLIGRAM, TID BEFORE MEALS
     Route: 048
  31. PANTOPRAZOLE [Concomitant]
     Active Substance: PANTOPRAZOLE
     Indication: Product used for unknown indication
     Dosage: 40 MILLIGRAM, QD
     Route: 048
  32. POLYETHYLENE GLYCOL [Concomitant]
     Active Substance: POLYETHYLENE GLYCOL
     Indication: Abnormal faeces
     Dosage: TAKE 17 G 3 TIMES A DAY AS NEEDED (TITRATE TO HAVE AT LEAST ONE SOFT BM PER DAY)
     Route: 048
  33. CYANOCOBALAMIN [Concomitant]
     Active Substance: CYANOCOBALAMIN
     Indication: Vitamin B12 deficiency
     Dosage: 500 MICROGRAM, QD
     Route: 048
  34. ALBUTEROL SULFATE [Concomitant]
     Active Substance: ALBUTEROL SULFATE
     Indication: Wheezing
     Dosage: INHALE 3 MLS (2.5 MG TOTAL) BY NEBULIZATION EVERY 6 HOURS AS NEEDED FOR WHEEZING
  35. LIDOCAINE [Concomitant]
     Active Substance: LIDOCAINE
     Indication: Product used for unknown indication
     Dosage: APPLY TOPICALLY 3 TIMES A DAY
     Route: 061
  36. DICYCLOMINE [Concomitant]
     Active Substance: DICYCLOMINE HYDROCHLORIDE
     Indication: Product used for unknown indication
     Dosage: TAKE BY MOUTH
     Route: 048
  37. METHOCARBAMOL [Concomitant]
     Active Substance: METHOCARBAMOL
     Indication: Product used for unknown indication
     Dosage: 750 MILLIGRAM, TID, PRN
     Route: 048
  38. LOSARTAN [Concomitant]
     Active Substance: LOSARTAN
     Indication: Product used for unknown indication
     Dosage: 100 MILLIGRAM, QD
     Route: 048
  39. PROPRANOLOL [Concomitant]
     Active Substance: PROPRANOLOL HYDROCHLORIDE
     Indication: Product used for unknown indication
     Dosage: 120 MILLIGRAM, QD
     Route: 048
  40. POTASSIUM CHLORIDE [Concomitant]
     Active Substance: POTASSIUM CHLORIDE
     Indication: Product used for unknown indication
     Dosage: 20 MICROEQUIVALENT, BID
     Route: 048
  41. NAPROXEN [Concomitant]
     Active Substance: NAPROXEN
     Indication: Product used for unknown indication
     Dosage: 500 MILLIGRAM, EVERY 6 HOURS, PRN
     Route: 048
  42. SPIRONOLACTONE [Concomitant]
     Active Substance: SPIRONOLACTONE
     Indication: Product used for unknown indication
     Dosage: 25 MILLIGRAM, QD
     Route: 048
  43. GABAPENTIN [Concomitant]
     Active Substance: GABAPENTIN
     Indication: Product used for unknown indication
     Dosage: 400 MILLIGRAM, TID
     Route: 048
  44. NORETHINDRONE [Concomitant]
     Active Substance: NORETHINDRONE
     Indication: Product used for unknown indication
     Dosage: 10 MILLIGRAM, QD
     Route: 048
  45. SUMATRIPTAN [Concomitant]
     Active Substance: SUMATRIPTAN
     Indication: Product used for unknown indication
     Dosage: 50 MILLIGRAM, QD, PRN
     Route: 048
  46. APIXABAN [Concomitant]
     Active Substance: APIXABAN
     Indication: Deep vein thrombosis
     Dosage: 10 MILLIGRAM, BID
     Route: 048

REACTIONS (3)
  - Drug ineffective [Unknown]
  - Blood iron decreased [Unknown]
  - Inappropriate schedule of product administration [Unknown]

NARRATIVE: CASE EVENT DATE: 20190701
